FAERS Safety Report 7356229 (Version 3)
Quarter: 2014Q1

REPORT INFORMATION
  Report Type: Spontaneous
  Country: US (occurrence: US)
  Receive Date: 20100415
  Receipt Date: 20140121
  Transmission Date: 20141002
  Serious: No
  Sender: FDA-Public Use
  Company Number: US-JNJFOC-20100401812

PATIENT
  Age: 74 Year
  Sex: Female
  Weight: 66.23 kg

DRUGS (3)
  1. DURAGESIC [Suspect]
     Indication: ARTHRALGIA
     Route: 062
     Dates: end: 20100318
  2. DURAGESIC [Suspect]
     Indication: ARTHRALGIA
     Dosage: NDC NUMBER# 50458-00094-05
     Route: 062
     Dates: start: 20100318
  3. UNKNOWN MEDICATION [Concomitant]

REACTIONS (6)
  - Drug administered at inappropriate site [Not Recovered/Not Resolved]
  - Road traffic accident [Recovered/Resolved]
  - Ankle fracture [Recovered/Resolved]
  - Application site irritation [Not Recovered/Not Resolved]
  - Drug ineffective [Not Recovered/Not Resolved]
  - Product packaging quantity issue [Unknown]
